FAERS Safety Report 12144698 (Version 1)
Quarter: 2016Q1

REPORT INFORMATION
  Report Type: Spontaneous
  Country: US (occurrence: US)
  Receive Date: 20160304
  Receipt Date: 20160304
  Transmission Date: 20160526
  Serious: Yes (Other)
  Sender: FDA-Public Use
  Company Number: US-ABBVIE-16P-163-1543159-00

PATIENT
  Sex: Male

DRUGS (1)
  1. ANDROGEL [Suspect]
     Active Substance: TESTOSTERONE
     Indication: ANDROGEN REPLACEMENT THERAPY
     Route: 065
     Dates: start: 200810, end: 201408

REACTIONS (3)
  - Pulmonary embolism [Unknown]
  - Cerebrovascular accident [Unknown]
  - Infarction [Unknown]

NARRATIVE: CASE EVENT DATE: 201003
